FAERS Safety Report 5994835-1 (Version None)
Quarter: 2008Q4

REPORT INFORMATION
  Report Type: 
  Country: None (occurrence: None)
  Receive Date: 20081212
  Receipt Date: 20080915
  Transmission Date: 20090506
  Serious: No
  Sender: FDA-Public Use
  Company Number: US-ABBOTT-08P-163-0476506-00

PATIENT
  Sex: Male
  Weight: 77.18 kg

DRUGS (11)
  1. HUMIRA [Suspect]
     Indication: PSORIASIS
     Route: 058
     Dates: start: 20080501
  2. HUMIRA [Suspect]
     Indication: PSORIATIC ARTHROPATHY
  3. HUMIRA [Suspect]
     Indication: ANKYLOSING SPONDYLITIS
  4. METFORMIN HCL [Concomitant]
     Indication: DIABETES MELLITUS
     Route: 048
     Dates: end: 20080801
  5. TRIMISINOME CREAM [Concomitant]
     Indication: PSORIASIS
     Route: 061
  6. CLYOBECTS SPRAY [Concomitant]
     Indication: PSORIASIS
     Route: 061
     Dates: start: 20080301
  7. ALTRAM XR [Concomitant]
     Indication: INTERVERTEBRAL DISC PROTRUSION
     Dosage: ONE OR TWO DAILY AS NEEDED
     Route: 048
     Dates: start: 20070101
  8. DIOVAN HCT [Concomitant]
     Indication: HYPERTENSION
     Dosage: 160MG/12.5MG DAILY
     Route: 048
     Dates: end: 20080801
  9. FENOFIBRATE [Concomitant]
     Indication: BLOOD CHOLESTEROL INCREASED
     Route: 048
     Dates: end: 20080801
  10. FENOFIBRATE [Concomitant]
     Indication: BLOOD TRIGLYCERIDES INCREASED
  11. OXYCODONE HCL [Concomitant]
     Indication: PAIN
     Route: 048
     Dates: end: 20070101

REACTIONS (2)
  - DRUG INEFFECTIVE [None]
  - INJECTION SITE IRRITATION [None]
